FAERS Safety Report 6149475-0 (Version None)
Quarter: 2009Q2

REPORT INFORMATION
  Report Type: 
  Country: None (occurrence: None)
  Receive Date: 20090409
  Receipt Date: 20090401
  Transmission Date: 20091009
  Serious: Yes (Hospitalization)
  Sender: FDA-Public Use
  Company Number: FR-WYE-G03432609

PATIENT
  Sex: Female

DRUGS (6)
  1. EFFEXOR [Suspect]
     Indication: DEPRESSION
     Route: 048
     Dates: start: 20090201, end: 20090312
  2. NOZINAN [Concomitant]
     Route: 048
     Dates: start: 20090201, end: 20090301
  3. NOZINAN [Concomitant]
     Dosage: UNKNOWN; DOSE REDUCED
     Route: 048
     Dates: start: 20090301
  4. TRANXENE [Concomitant]
     Route: 048
     Dates: start: 20090201, end: 20090301
  5. TRANXENE [Concomitant]
     Dosage: UNKNOWN; DOSE REDUCED
     Route: 048
     Dates: start: 20090301
  6. ACETAMINOPHEN [Suspect]
     Indication: ABDOMINAL PAIN
     Dosage: 6 TO 7 G DAILY
     Route: 048
     Dates: start: 20090201, end: 20090312

REACTIONS (13)
  - ABDOMINAL PAIN [None]
  - ASTHENIA [None]
  - BACK PAIN [None]
  - BLOOD ALKALINE PHOSPHATASE INCREASED [None]
  - C-REACTIVE PROTEIN INCREASED [None]
  - CYTOLYTIC HEPATITIS [None]
  - GAMMA-GLUTAMYLTRANSFERASE INCREASED [None]
  - HEPATIC STEATOSIS [None]
  - INTENTIONAL OVERDOSE [None]
  - NORMOCHROMIC NORMOCYTIC ANAEMIA [None]
  - OCULAR ICTERUS [None]
  - SERUM FERRITIN INCREASED [None]
  - VOMITING [None]
